FAERS Safety Report 4358654-4 (Version None)
Quarter: 2004Q2

REPORT INFORMATION
  Report Type: 
  Country: None (occurrence: None)
  Receive Date: 20040511
  Receipt Date: 20040427
  Transmission Date: 20050107
  Serious: Yes (Disabling)
  Sender: FDA-Public Use
  Company Number: 231892K03USA

PATIENT
  Age: 43 Year
  Sex: Female
  Weight: 97.0698 kg

DRUGS (1)
  1. REBIF [Suspect]
     Indication: MULTIPLE SCLEROSIS
     Dosage: 44 MCG, SUBCUTANEOUS
     Route: 058
     Dates: start: 20020801, end: 20030917

REACTIONS (7)
  - CONTUSION [None]
  - FALL [None]
  - HIRSUTISM [None]
  - MULTIPLE SCLEROSIS [None]
  - ONYCHORRHEXIS [None]
  - VISUAL ACUITY REDUCED [None]
  - WEIGHT DECREASED [None]
